FAERS Safety Report 18437481 (Version 2)
Quarter: 2020Q4

REPORT INFORMATION
  Report Type: Spontaneous
  Country: CA (occurrence: CA)
  Receive Date: 20201028
  Receipt Date: 20201118
  Transmission Date: 20210114
  Serious: Yes (Death, Other)
  Sender: FDA-Public Use
  Company Number: CA-PFIZER INC-2015278817

PATIENT
  Age: 64 Year
  Sex: Female

DRUGS (4)
  1. ACTONEL [Concomitant]
     Active Substance: RISEDRONATE SODIUM
     Dosage: 35 MG (1 TABLET), WEEKLY
     Dates: start: 20150728
  2. XELJANZ [Suspect]
     Active Substance: TOFACITINIB CITRATE
     Indication: RHEUMATOID ARTHRITIS
     Dosage: 5 MG, 2X/DAY
     Route: 048
     Dates: start: 20150814, end: 2020
  3. CHOLECALCIFEROL [Concomitant]
     Active Substance: CHOLECALCIFEROL
     Dosage: 1000 IU CAPSULE, 1X/DAY
     Route: 048
     Dates: start: 20150728
  4. CALCIUM CARBONATE. [Concomitant]
     Active Substance: CALCIUM CARBONATE
     Dosage: 500 MG CAPSULE, 2X/DAY
     Route: 048
     Dates: start: 20150728

REACTIONS (10)
  - Cerebrovascular accident [Fatal]
  - Nasopharyngitis [Unknown]
  - Pain [Not Recovered/Not Resolved]
  - Joint effusion [Not Recovered/Not Resolved]
  - Drug ineffective [Unknown]
  - Foot deformity [Not Recovered/Not Resolved]
  - Vertigo [Recovered/Resolved]
  - Pain in extremity [Not Recovered/Not Resolved]
  - Herpes zoster [Recovered/Resolved]
  - Mass [Not Recovered/Not Resolved]

NARRATIVE: CASE EVENT DATE: 201511
